FAERS Safety Report 14979066 (Version 1)
Quarter: 2018Q2

REPORT INFORMATION
  Report Type: Spontaneous
  Country: JP (occurrence: JP)
  Receive Date: 20180606
  Receipt Date: 20180606
  Transmission Date: 20180711
  Serious: Yes (Hospitalization)
  Sender: FDA-Public Use
  Company Number: JP-PFIZER INC-2018219658

PATIENT
  Age: 68 Year
  Sex: Male

DRUGS (1)
  1. LYRICA [Suspect]
     Active Substance: PREGABALIN
     Dosage: 375 MG IN 2 DIVIDED DOSES, DAILY (150 MG IN THE MORNING AND 225 MG IN THE EVENING)
     Route: 048

REACTIONS (4)
  - Oral mucosa erosion [Unknown]
  - Rash generalised [Unknown]
  - Pyrexia [Unknown]
  - Drug eruption [Unknown]
